FAERS Safety Report 9562002 (Version 2)
Quarter: 2013Q4

REPORT INFORMATION
  Report Type: Spontaneous
  Country: US (occurrence: US)
  Receive Date: 20130927
  Receipt Date: 20131018
  Transmission Date: 20140711
  Serious: Yes (Other)
  Sender: FDA-Public Use
  Company Number: US-JNJFOC-20130909922

PATIENT
  Sex: Male
  Weight: 102.06 kg

DRUGS (2)
  1. DURAGESIC [Suspect]
     Indication: PRODUCT USED FOR UNKNOWN INDICATION
     Dosage: 15 PATCHES EVERY 30-DAYS
     Route: 062
     Dates: start: 2007
  2. DURAGESIC [Suspect]
     Indication: PRODUCT USED FOR UNKNOWN INDICATION
     Route: 062

REACTIONS (8)
  - Rheumatoid arthritis [Unknown]
  - Product quality issue [Not Recovered/Not Resolved]
  - Pain [Recovered/Resolved]
  - Drug withdrawal syndrome [Recovered/Resolved]
  - Discomfort [Recovered/Resolved]
  - Product quality issue [Unknown]
  - Drug dose omission [Unknown]
  - Inappropriate schedule of drug administration [Not Recovered/Not Resolved]
